FAERS Safety Report 20517445 (Version 1)
Quarter: 2022Q1

REPORT INFORMATION
  Report Type: Spontaneous
  Country: US (occurrence: None)
  Receive Date: 20220224
  Receipt Date: 20220224
  Transmission Date: 20220423
  Serious: Yes (unspecified)
  Sender: FDA-Public Use
  Company Number: None

PATIENT
  Age: 62 Year
  Sex: Male
  Weight: 78.93 kg

DRUGS (1)
  1. NALTREXONE [Suspect]
     Active Substance: NALTREXONE
     Indication: Alcohol use disorder
     Dosage: 50 MG DAIL ORAL?
     Route: 048
     Dates: start: 20220127, end: 20220128

REACTIONS (1)
  - Tremor [None]

NARRATIVE: CASE EVENT DATE: 20220127
